FAERS Safety Report 18618357 (Version 4)
Quarter: 2020Q4

REPORT INFORMATION
  Report Type: Spontaneous
  Country: US (occurrence: US)
  Receive Date: 20201215
  Receipt Date: 20201218
  Transmission Date: 20210114
  Serious: Yes (Life-Threatening)
  Sender: FDA-Public Use
  Company Number: US-PFIZER INC-2020489425

PATIENT
  Age: 75 Year
  Sex: Male

DRUGS (7)
  1. NORMAL SALINE [Concomitant]
     Active Substance: SODIUM CHLORIDE
     Dosage: 200 ML/HR
     Route: 042
  2. HYDROXYZINE HYDROCHLORIDE. [Suspect]
     Active Substance: HYDROXYZINE HYDROCHLORIDE
     Indication: NASAL CAVITY PACKING
     Dosage: 50 MG
     Route: 030
  3. METAPROTERENOL SULFATE. [Concomitant]
     Active Substance: METAPROTERENOL SULFATE
     Dosage: UNK
     Route: 055
  4. THEOPHYLLINE [Concomitant]
     Active Substance: THEOPHYLLINE ANHYDROUS
     Dosage: UNK
  5. FUROSEMIDE. [Concomitant]
     Active Substance: FUROSEMIDE
     Dosage: UNK
  6. MEPERIDINE HCL [Suspect]
     Active Substance: MEPERIDINE HYDROCHLORIDE
     Indication: NASAL CAVITY PACKING
     Dosage: 75 MG
     Route: 030
  7. RANITIDINE. [Concomitant]
     Active Substance: RANITIDINE
     Dosage: UNK

REACTIONS (2)
  - Off label use [Unknown]
  - Respiratory failure [Recovering/Resolving]
